FAERS Safety Report 11907196 (Version 1)
Quarter: 2016Q1

REPORT INFORMATION
  Report Type: Other
  Country: US (occurrence: US)
  Receive Date: 20160111
  Receipt Date: 20160111
  Transmission Date: 20160526
  Serious: Yes (Hospitalization)
  Sender: FDA-Public Use
  Company Number: US-DEP_13343_2016

PATIENT
  Sex: Male
  Weight: 189 kg

DRUGS (2)
  1. GRALISE [Suspect]
     Active Substance: GABAPENTIN
     Indication: NEUROPATHY PERIPHERAL
     Route: 048
     Dates: start: 201401
  2. GRALISE [Suspect]
     Active Substance: GABAPENTIN
     Dosage: TITRATED UP TO 1800MG ONCE DAILY
     Route: 048
     Dates: start: 2013, end: 2013

REACTIONS (3)
  - Renal failure [Unknown]
  - Off label use [Not Recovered/Not Resolved]
  - Inappropriate schedule of drug administration [Not Recovered/Not Resolved]

NARRATIVE: CASE EVENT DATE: 2013
